FAERS Safety Report 23887750 (Version 7)
Quarter: 2024Q4

REPORT INFORMATION
  Report Type: Spontaneous
  Country: CA (occurrence: CA)
  Receive Date: 20240523
  Receipt Date: 20241107
  Transmission Date: 20250115
  Serious: Yes (Other)
  Sender: CELLTRION
  Company Number: CA-PFIZER INC-202400108705

PATIENT

DRUGS (9)
  1. INFLECTRA [Suspect]
     Active Substance: INFLIXIMAB-DYYB
     Indication: Crohn^s disease
     Dosage: 500 MG, EVERY 4 WEEKS
     Route: 042
     Dates: start: 20240416
  2. INFLECTRA [Suspect]
     Active Substance: INFLIXIMAB-DYYB
     Dosage: 500 MG, EVERY 4 WEEKS
     Route: 042
     Dates: start: 20240514
  3. INFLECTRA [Suspect]
     Active Substance: INFLIXIMAB-DYYB
     Dosage: 500 MG, 8 WEEKS (PRESCRIBED TREATMENTS EVERY 4 WEEKS)
     Route: 042
     Dates: start: 20240709
  4. INFLECTRA [Suspect]
     Active Substance: INFLIXIMAB-DYYB
     Dosage: 500 MG, 4 WEEKS (PRESCRIBED TREATMENTS EVERY 4 WEEKS)
     Route: 042
     Dates: start: 20240812
  5. INFLECTRA [Suspect]
     Active Substance: INFLIXIMAB-DYYB
     Dosage: 500MG, 4 WEEKS (500 MG, EVERY 4 WEEKS)
     Route: 042
     Dates: start: 20240903
  6. INFLECTRA [Suspect]
     Active Substance: INFLIXIMAB-DYYB
     Dosage: 500MG, EVERY 4 WEEKS
     Route: 042
     Dates: start: 20241001
  7. INFLECTRA [Suspect]
     Active Substance: INFLIXIMAB-DYYB
     Dosage: 500 MG, 4 WEEKS (EVERY 4 WEEKS)
     Route: 042
     Dates: start: 20241029
  8. PREDNISONE [Concomitant]
     Active Substance: PREDNISONE
     Dosage: 1 DF, DOSAGE INFO UNKNOWN
     Route: 065
     Dates: start: 20200320
  9. PENTASA [Concomitant]
     Active Substance: MESALAMINE
     Dosage: 1 DF, DOSAGE INFO UNKNOWN
     Route: 065

REACTIONS (3)
  - Condition aggravated [Not Recovered/Not Resolved]
  - Infection [Unknown]
  - Weight decreased [Unknown]

NARRATIVE: CASE EVENT DATE: 20240101
